FAERS Safety Report 15524377 (Version 1)
Quarter: 2018Q4

REPORT INFORMATION
  Report Type: Spontaneous
  Country: BR (occurrence: BR)
  Receive Date: 20181019
  Receipt Date: 20181019
  Transmission Date: 20190205
  Serious: Yes (Other)
  Sender: FDA-Public Use
  Company Number: BR-UCBSA-2018045614

PATIENT
  Age: 23 Year
  Sex: Female
  Weight: 30 kg

DRUGS (7)
  1. KEPPRA [Suspect]
     Active Substance: LEVETIRACETAM
     Dosage: 750 MG SPLIT IN HALF, 2X/DAY (BID)
     Route: 048
     Dates: start: 20180917
  2. KEPPRA [Suspect]
     Active Substance: LEVETIRACETAM
     Dosage: 375 MG, 2X/DAY (BID)
     Route: 048
     Dates: start: 20180916, end: 20180916
  3. SERETIDE [Concomitant]
     Active Substance: FLUTICASONE PROPIONATE\SALMETEROL XINAFOATE
     Indication: ASTHMA
     Dosage: STRNEGTH :125/125ML, UNK
     Route: 048
     Dates: start: 2014
  4. DEPAKOTE [Concomitant]
     Active Substance: DIVALPROEX SODIUM
     Indication: SEIZURE
     Dosage: 250 MG, 2X/DAY (BID)
     Dates: end: 2018
  5. LAMOTRIGINE. [Concomitant]
     Active Substance: LAMOTRIGINE
     Indication: SEIZURE
     Dosage: 50 MG, 2X/DAY (BID)
     Route: 048
     Dates: start: 2013
  6. KEPPRA [Suspect]
     Active Substance: LEVETIRACETAM
     Indication: SEIZURE
     Dosage: 250 MG, 2X/DAY (BID)
     Route: 048
     Dates: start: 20180810, end: 2018
  7. FRISIUM [Concomitant]
     Active Substance: CLOBAZAM
     Indication: SEDATIVE THERAPY
     Dosage: 15 MG, ONCE DAILY (QD)
     Route: 048
     Dates: start: 2016

REACTIONS (6)
  - Urinary tract infection [Recovered/Resolved]
  - Aggression [Not Recovered/Not Resolved]
  - Irritability [Not Recovered/Not Resolved]
  - Insomnia [Not Recovered/Not Resolved]
  - Seizure [Recovered/Resolved]
  - Off label use [Unknown]

NARRATIVE: CASE EVENT DATE: 201809
